FAERS Safety Report 15196169 (Version 4)
Quarter: 2018Q4

REPORT INFORMATION
  Report Type: Spontaneous
  Country: US (occurrence: US)
  Receive Date: 20180725
  Receipt Date: 20181106
  Transmission Date: 20190204
  Serious: Yes (Hospitalization, Other)
  Sender: FDA-Public Use
  Company Number: US-UNITED THERAPEUTICS-UNT-2018-010931

PATIENT
  Sex: Female

DRUGS (1)
  1. REMODULIN [Suspect]
     Active Substance: TREPROSTINIL
     Indication: PULMONARY ARTERIAL HYPERTENSION
     Dosage: UNK
     Route: 058
     Dates: start: 2017, end: 2018

REACTIONS (4)
  - Intentional product misuse [Unknown]
  - Delirium [Not Recovered/Not Resolved]
  - Paranoia [Unknown]
  - Drug interaction [Unknown]

NARRATIVE: CASE EVENT DATE: 20180712
